FAERS Safety Report 9255181 (Version 1)
Quarter: 2013Q1

REPORT INFORMATION
  Report Type: Spontaneous
  Country: US (occurrence: None)
  Receive Date: 20121212
  Receipt Date: 20121212
  Transmission Date: 20140127
  Serious: No
  Sender: FDA-Public Use
  Company Number: 1209USA002117

PATIENT
  Age: 54 Year
  Sex: Male

DRUGS (10)
  1. VICTRELIS [Suspect]
     Route: 048
     Dates: start: 201203, end: 20120831
  2. REBETOL [Suspect]
  3. PEG-INTRON (PEGINTERFERON ALFA-2B) POWDER FOR INJECTION [Suspect]
  4. METOCLOPRAMIDE (METOCLOPRAMIDE) TABLET, 10 MG [Concomitant]
  5. SIMVASTATIN  (SIMVASTATIN) [Concomitant]
  6. LISINOPRIL (LISINOPRIL) TABLET, 10 MG [Concomitant]
  7. LEVEMIR (INSULIN DETEMIR) , 100 IU [Concomitant]
  8. PRILOSEC (OMEPRAZOLE) CAPSULE, 20 MG [Concomitant]
  9. DILTIAZEM CD (DILTIAZEM HYDROCHLORIDE) CAPSULE, 240 MG [Concomitant]
  10. TRAZODONE HYDROCHLORIDE (TRAZODONE HYDROCHLORIDE) TABLET, 50 MG [Concomitant]

REACTIONS (3)
  - Nausea [None]
  - Vomiting [None]
  - Diarrhoea [None]
